FAERS Safety Report 7381963-1 (Version None)
Quarter: 2011Q1

REPORT INFORMATION
  Report Type: 
  Country: None (occurrence: None)
  Receive Date: 20110329
  Receipt Date: 20110325
  Transmission Date: 20110831
  Serious: Yes (Hospitalization, Other)
  Sender: FDA-Public Use
  Company Number: CA-ABBOTT-11P-028-0708307-00

PATIENT
  Sex: Female
  Weight: 60 kg

DRUGS (1)
  1. HUMIRA [Suspect]
     Indication: CROHN'S DISEASE
     Route: 058
     Dates: start: 20101111

REACTIONS (10)
  - RENAL SURGERY [None]
  - OVARIAN DISORDER [None]
  - DRUG INEFFECTIVE [None]
  - HAEMATURIA [None]
  - HYDRONEPHROSIS [None]
  - CELLULITIS [None]
  - BONE DISORDER [None]
  - TREATMENT FAILURE [None]
  - PYREXIA [None]
  - ABDOMINAL PAIN [None]
